FAERS Safety Report 4334427-3 (Version None)
Quarter: 2004Q1

REPORT INFORMATION
  Report Type: 
  Country: None (occurrence: None)
  Receive Date: 20040326
  Receipt Date: 20031208
  Transmission Date: 20041129
  Serious: No
  Sender: FDA-Public Use
  Company Number: WAES 0310USA02155

PATIENT
  Age: 69 Year
  Sex: Female

DRUGS (9)
  1. INVANZ [Suspect]
     Indication: CELLULITIS
     Dosage: 1 GM/ DAILY/ IV
     Route: 042
     Dates: start: 20031001, end: 20031014
  2. AMBIEN [Concomitant]
  3. DARVON [Concomitant]
  4. ELAVIL [Concomitant]
  5. SYNTHROID [Concomitant]
  6. TOPROL-XL [Concomitant]
  7. VALIUM [Concomitant]
  8. VIOXX [Concomitant]
  9. ASCORBIC ACID [Concomitant]

REACTIONS (1)
  - TOOTH DISCOLOURATION [None]
